FAERS Safety Report 6172561-6 (Version None)
Quarter: 2009Q2

REPORT INFORMATION
  Report Type: 
  Country: None (occurrence: None)
  Receive Date: 20090429
  Receipt Date: 20090127
  Transmission Date: 20091009
  Serious: No
  Sender: FDA-Public Use
  Company Number: US-BAUSCH-2009BL000375

PATIENT
  Age: 42 Year
  Sex: Female

DRUGS (1)
  1. TOBRAMYCIN AND DEXAMETHASONE OPHTHALMIC SUSPENSION USP 0.3%/0.1% [Suspect]
     Indication: CONJUNCTIVITIS ALLERGIC
     Route: 047
     Dates: start: 20090120, end: 20090124

REACTIONS (2)
  - CONJUNCTIVITIS ALLERGIC [None]
  - HYPERSENSITIVITY [None]
